FAERS Safety Report 21016106 (Version 4)
Quarter: 2022Q4

REPORT INFORMATION
  Report Type: Report from Study
  Country: US (occurrence: US)
  Receive Date: 20220628
  Receipt Date: 20221221
  Transmission Date: 20230112
  Serious: No
  Sender: FDA-Public Use
  Company Number: US-NOVARTISTESTPH-NVSC2022US146472

PATIENT
  Sex: Female

DRUGS (1)
  1. KESIMPTA [Suspect]
     Active Substance: OFATUMUMAB
     Indication: Multiple sclerosis
     Dosage: 20 MG
     Route: 058
     Dates: start: 20210603

REACTIONS (7)
  - Speech disorder [Unknown]
  - Dry mouth [Unknown]
  - Stress [Unknown]
  - Memory impairment [Unknown]
  - Weight decreased [Unknown]
  - Vertigo [Unknown]
  - Muscular weakness [Unknown]
